FAERS Safety Report 21930310 (Version 4)
Quarter: 2023Q1

REPORT INFORMATION
  Report Type: Report from Study
  Country: CA (occurrence: CA)
  Receive Date: 20230131
  Receipt Date: 20230324
  Transmission Date: 20230418
  Serious: Yes (Hospitalization, Other)
  Sender: FDA-Public Use
  Company Number: CA-JNJFOC-20221248754

PATIENT
  Age: 50 Year
  Sex: Female
  Weight: 92 kg

DRUGS (1)
  1. SIMPONI [Suspect]
     Active Substance: GOLIMUMAB
     Indication: Ankylosing spondylitis
     Route: 058
     Dates: end: 202211

REACTIONS (10)
  - Seizure [Unknown]
  - Oral pain [Unknown]
  - Headache [Unknown]
  - Parosmia [Unknown]
  - Localised infection [Unknown]
  - Musculoskeletal stiffness [Unknown]
  - Injury [Unknown]
  - Impaired healing [Unknown]
  - Off label use [Unknown]
  - Cystitis [Unknown]
